FAERS Safety Report 18203755 (Version 1)
Quarter: 2020Q3

REPORT INFORMATION
  Report Type: Spontaneous
  Country: FR (occurrence: FR)
  Receive Date: 20200827
  Receipt Date: 20200827
  Transmission Date: 20201103
  Serious: Yes (Hospitalization)
  Sender: FDA-Public Use
  Company Number: FR-MYLANLABS-2020M1073301

PATIENT
  Age: 81 Year
  Sex: Male
  Weight: 50 kg

DRUGS (3)
  1. ETOPOSIDE MYLAN 20 MG/ML, SOLUTION ? DILUER POUR PERFUSION [Suspect]
     Active Substance: ETOPOSIDE
     Indication: SMALL CELL LUNG CANCER METASTATIC
     Dosage: 160 MILLIGRAM, QD
     Route: 041
     Dates: start: 20200423, end: 20200425
  2. ACCORD CARBOPLATIN [Suspect]
     Active Substance: CARBOPLATIN
     Indication: SMALL CELL LUNG CANCER METASTATIC
     Dosage: 430 MILLIGRAM, TOTAL
     Route: 041
     Dates: start: 20200423, end: 20200423
  3. METHYLPREDNISOLONE. [Concomitant]
     Active Substance: METHYLPREDNISOLONE
     Dosage: UNK

REACTIONS (4)
  - Cardiac failure [Recovered/Resolved]
  - Anaemia [Recovered/Resolved]
  - Atrial fibrillation [Recovering/Resolving]
  - Neutropenia [Recovered/Resolved]

NARRATIVE: CASE EVENT DATE: 20200427
